FAERS Safety Report 14994736 (Version 2)
Quarter: 2018Q3

REPORT INFORMATION
  Report Type: Spontaneous
  Country: FR (occurrence: FR)
  Receive Date: 20180611
  Receipt Date: 20180720
  Transmission Date: 20181010
  Serious: Yes (Congenital Anomaly, Other)
  Sender: FDA-Public Use
  Company Number: FR-UCBSA-2018024660

PATIENT
  Sex: Female
  Weight: 3.9 kg

DRUGS (11)
  1. EPITOMAX [Suspect]
     Active Substance: TOPIRAMATE
     Dosage: 150 MG
     Route: 064
  2. DEPAKINE [Suspect]
     Active Substance: VALPROATE SODIUM
     Dosage: 1250 MG, DAILY
     Route: 064
     Dates: start: 2012, end: 2012
  3. URBANYL [Suspect]
     Active Substance: CLOBAZAM
     Indication: EPILEPSY
     Dosage: 10 MG, DAILY
     Route: 064
     Dates: start: 2012, end: 2013
  4. FOLIC ACID. [Concomitant]
     Active Substance: FOLIC ACID
     Indication: PRODUCT USED FOR UNKNOWN INDICATION
     Route: 064
  5. DEPAKINE [Suspect]
     Active Substance: VALPROATE SODIUM
     Indication: EPILEPSY
  6. VIMPAT [Suspect]
     Active Substance: LACOSAMIDE
     Indication: EPILEPSY
     Dosage: 350 MG, DAILY
     Route: 064
     Dates: start: 2012, end: 2012
  7. DEPAKINE [Suspect]
     Active Substance: VALPROATE SODIUM
     Indication: FOETAL EXPOSURE DURING PREGNANCY
  8. VIMPAT [Suspect]
     Active Substance: LACOSAMIDE
     Dosage: REDUCED DOSE
     Route: 064
  9. EPITOMAX [Suspect]
     Active Substance: TOPIRAMATE
     Indication: EPILEPSY
     Dosage: 250MG DAILY
     Route: 064
     Dates: start: 2012, end: 2012
  10. EPITOMAX [Suspect]
     Active Substance: TOPIRAMATE
     Dosage: REDUCED DOSE
     Route: 064
  11. LASILIX [Concomitant]
     Active Substance: FUROSEMIDE
     Indication: PRODUCT USED FOR UNKNOWN INDICATION
     Dosage: UNK
     Dates: end: 201309

REACTIONS (6)
  - Congenital tracheomalacia [Not Recovered/Not Resolved]
  - Dysmorphism [Not Recovered/Not Resolved]
  - Congenital floppy infant [Not Recovered/Not Resolved]
  - Ventricular septal defect [Recovered/Resolved with Sequelae]
  - Foetal exposure during pregnancy [Unknown]
  - Congenital central nervous system anomaly [Not Recovered/Not Resolved]

NARRATIVE: CASE EVENT DATE: 2012
